FAERS Safety Report 25063911 (Version 2)
Quarter: 2025Q2

REPORT INFORMATION
  Report Type: Spontaneous
  Country: CA (occurrence: CA)
  Receive Date: 20250311
  Receipt Date: 20250519
  Transmission Date: 20250716
  Serious: Yes (Hospitalization, Other)
  Sender: Kenvue
  Company Number: CA-KENVUE-20250300690

PATIENT

DRUGS (6)
  1. IBUPROFEN [Suspect]
     Active Substance: IBUPROFEN
     Indication: Postoperative analgesia
     Dosage: 600 MILLIGRAM, THRICE A DAY
     Route: 048
     Dates: start: 20240131
  2. IBUPROFEN [Suspect]
     Active Substance: IBUPROFEN
     Indication: Dental operation
  3. DEXAMETHASONE [Concomitant]
     Active Substance: DEXAMETHASONE
     Indication: Post procedural discharge
     Route: 048
     Dates: start: 20240131, end: 20240202
  4. MARVELON [Concomitant]
     Active Substance: DESOGESTREL\ETHINYL ESTRADIOL
     Indication: Product used for unknown indication
     Route: 065
  5. Rivacocet [Concomitant]
     Indication: Post procedural discharge
     Route: 048
     Dates: start: 20240131, end: 20240131
  6. DESOGESTREL\ETHINYL ESTRADIOL [Concomitant]
     Active Substance: DESOGESTREL\ETHINYL ESTRADIOL
     Indication: Product used for unknown indication
     Dosage: 30+150 MG, ONCE A DAY
     Route: 048
     Dates: start: 20230627

REACTIONS (8)
  - Dyspnoea [Recovered/Resolved]
  - Epigastric discomfort [Recovered/Resolved]
  - Red blood cell count decreased [Recovered/Resolved]
  - Suprapubic pain [Recovered/Resolved]
  - Gastritis erosive [Recovered/Resolved]
  - Upper gastrointestinal haemorrhage [Recovered/Resolved]
  - Haematemesis [Recovered/Resolved]
  - Abdominal pain [Recovered/Resolved]

NARRATIVE: CASE EVENT DATE: 20240210
